FAERS Safety Report 4944652-6 (Version None)
Quarter: 2006Q1

REPORT INFORMATION
  Report Type: 
  Country: None (occurrence: None)
  Receive Date: 20060315
  Receipt Date: 20050919
  Transmission Date: 20060701
  Serious: Yes (Death)
  Sender: FDA-Public Use
  Company Number: FR-ABBOTT-05P-056-0311401-00

PATIENT
  Sex: Male

DRUGS (4)
  1. RITONAVIR SOFT GELATIN CAPSULES [Suspect]
     Indication: HIV INFECTION
     Route: 048
     Dates: start: 20050909, end: 20050911
  2. TIPRANAVIR [Concomitant]
     Indication: HIV INFECTION
     Route: 048
     Dates: start: 20050909, end: 20050911
  3. FUZEON [Concomitant]
     Indication: HIV INFECTION
     Route: 058
     Dates: start: 20050820, end: 20050911
  4. TENOFOVIR [Concomitant]
     Indication: HIV INFECTION
     Route: 048
     Dates: start: 20050820, end: 20050911

REACTIONS (5)
  - CELLULITIS [None]
  - DISSEMINATED INTRAVASCULAR COAGULATION [None]
  - MENINGITIS VIRAL [None]
  - NEUTROPENIA [None]
  - SEPTIC SHOCK [None]
